FAERS Safety Report 6055966-3 (Version None)
Quarter: 2009Q1

REPORT INFORMATION
  Report Type: 
  Country: None (occurrence: None)
  Receive Date: 20090128
  Receipt Date: 20090122
  Transmission Date: 20090719
  Serious: No
  Sender: FDA-Public Use
  Company Number: US-B.I. PHARMACEUTICALS,INC./RIDGEFIELD-2009-BP-00775BP

PATIENT
  Sex: Female

DRUGS (2)
  1. MIRAPEX [Suspect]
     Indication: RESTLESS LEGS SYNDROME
     Dosage: .125MG
     Route: 048
     Dates: start: 20081205, end: 20090120
  2. MIRAPEX [Suspect]
     Dosage: .25MG
     Route: 048
     Dates: start: 20090121

REACTIONS (3)
  - COGNITIVE DISORDER [None]
  - DRUG INEFFECTIVE [None]
  - NAUSEA [None]
